FAERS Safety Report 5778535-9 (Version None)
Quarter: 2008Q2

REPORT INFORMATION
  Report Type: 
  Country: None (occurrence: None)
  Receive Date: 20080618
  Receipt Date: 20070530
  Transmission Date: 20081010
  Serious: No
  Sender: FDA-Public Use
  Company Number: 07H-163-0312676-00

PATIENT
  Age: 49 Year
  Sex: Male
  Weight: 165 kg

DRUGS (1)
  1. HEPARIN SODIUM INJECTION [Suspect]
     Indication: PULMONARY EMBOLISM
     Dosage: TITRATE TO AT LEAST 2000 U/HR, INTRAVENOUS
     Route: 042
     Dates: start: 20070515

REACTIONS (1)
  - THERAPEUTIC RESPONSE DELAYED [None]
